FAERS Safety Report 8385636-8 (Version None)
Quarter: 2012Q2

REPORT INFORMATION
  Report Type: 
  Country: None (occurrence: None)
  Receive Date: 20120525
  Receipt Date: 20120427
  Transmission Date: 20120825
  Serious: No
  Sender: FDA-Public Use
  Company Number: US-PFIZER INC-2012124859

PATIENT

DRUGS (1)
  1. LYRICA [Suspect]
     Dosage: ONE PILL TWICE DAILY, USUALLY 8 AM AND AGAIN AT 9 PM
     Dates: start: 20120401

REACTIONS (2)
  - POOR QUALITY SLEEP [None]
  - PRURITUS [None]
